FAERS Safety Report 8317197-3 (Version None)
Quarter: 2012Q2

REPORT INFORMATION
  Report Type: 
  Country: None (occurrence: None)
  Receive Date: 20120427
  Receipt Date: 20120418
  Transmission Date: 20120825
  Serious: Yes (Death)
  Sender: FDA-Public Use
  Company Number: DE-ACCORD-013269

PATIENT

DRUGS (2)
  1. CISPLATIN [Suspect]
     Dosage: ON DAYS 1, 8, 22, AND 29
  2. GEMCITABINE [Suspect]
     Dosage: ON 1, 8, 22, AND 29 DAYS.

REACTIONS (2)
  - DUODENAL ULCER HAEMORRHAGE [None]
  - OFF LABEL USE [None]
